FAERS Safety Report 23305830 (Version 1)
Quarter: 2023Q4

REPORT INFORMATION
  Report Type: Spontaneous
  Country: CN (occurrence: CN)
  Receive Date: 20231218
  Receipt Date: 20231218
  Transmission Date: 20240110
  Serious: Yes (Other)
  Sender: FDA-Public Use
  Company Number: CN-SHANGHAI JUNSHI BIOSCIENCES CO., LTD.-CN2023008816

PATIENT

DRUGS (14)
  1. TORIPALIMAB [Suspect]
     Active Substance: TORIPALIMAB
     Indication: Oesophageal squamous cell carcinoma
     Dosage: 240 MG (D1), Q3W
     Route: 041
     Dates: start: 20230724, end: 20230814
  2. TORIPALIMAB [Suspect]
     Active Substance: TORIPALIMAB
     Indication: Papilloma
  3. TORIPALIMAB [Suspect]
     Active Substance: TORIPALIMAB
     Indication: Hypopharyngeal cancer
  4. TORIPALIMAB [Suspect]
     Active Substance: TORIPALIMAB
     Indication: Tongue neoplasm malignant stage unspecified
  5. PACLITAXEL [Suspect]
     Active Substance: PACLITAXEL
     Indication: Oesophageal squamous cell carcinoma
     Dosage: 350 MG (D1), Q3W
     Route: 041
     Dates: start: 20230725, end: 20230815
  6. PACLITAXEL [Suspect]
     Active Substance: PACLITAXEL
     Indication: Papilloma
  7. PACLITAXEL [Suspect]
     Active Substance: PACLITAXEL
     Indication: Hypopharyngeal cancer
  8. PACLITAXEL [Suspect]
     Active Substance: PACLITAXEL
     Indication: Tongue neoplasm malignant stage unspecified
  9. LOBAPLATIN [Suspect]
     Active Substance: LOBAPLATIN
     Indication: Oesophageal squamous cell carcinoma
     Dosage: 40 MG (D1), Q3W
     Route: 041
     Dates: start: 20230725, end: 20230815
  10. LOBAPLATIN [Suspect]
     Active Substance: LOBAPLATIN
     Indication: Papilloma
  11. LOBAPLATIN [Suspect]
     Active Substance: LOBAPLATIN
     Indication: Hypopharyngeal cancer
  12. LOBAPLATIN [Suspect]
     Active Substance: LOBAPLATIN
     Indication: Tongue neoplasm malignant stage unspecified
  13. SODIUM CHLORIDE [Concomitant]
     Active Substance: SODIUM CHLORIDE
     Indication: Medication dilution
     Dosage: 100 ML (D1), Q3W
     Route: 041
     Dates: start: 20230724, end: 20230815
  14. DEXTROSE [Concomitant]
     Active Substance: DEXTROSE\DEXTROSE MONOHYDRATE
     Indication: Medication dilution
     Dosage: 500 ML (D1), Q3W
     Route: 041
     Dates: start: 20230725, end: 20230815

REACTIONS (1)
  - Full blood count decreased [Recovering/Resolving]

NARRATIVE: CASE EVENT DATE: 20230823
